FAERS Safety Report 8121799-7 (Version None)
Quarter: 2012Q1

REPORT INFORMATION
  Report Type: 
  Country: None (occurrence: None)
  Receive Date: 20120208
  Receipt Date: 20120131
  Transmission Date: 20120608
  Serious: Yes (Other)
  Sender: FDA-Public Use
  Company Number: NO-TEVA-321421ISR

PATIENT
  Age: 61 Year
  Sex: Male

DRUGS (1)
  1. ALENDRONIC ACID [Suspect]

REACTIONS (2)
  - COMPRESSION FRACTURE [None]
  - RIB FRACTURE [None]
